FAERS Safety Report 19563492 (Version 3)
Quarter: 2021Q4

REPORT INFORMATION
  Report Type: Spontaneous
  Country: PT (occurrence: PT)
  Receive Date: 20210716
  Receipt Date: 20211110
  Transmission Date: 20220303
  Serious: Yes (Other)
  Sender: FDA-Public Use
  Company Number: PT-ORGANON-O2107PRT000997

PATIENT
  Age: 23 Year
  Sex: Female

DRUGS (1)
  1. ETONOGESTREL [Suspect]
     Active Substance: ETONOGESTREL
     Dosage: 1 IMPLANT
     Route: 059
     Dates: start: 20200522

REACTIONS (8)
  - Syncope [Recovered/Resolved]
  - Pallor [Recovered/Resolved]
  - Dyspareunia [Recovered/Resolved]
  - Coital bleeding [Recovered/Resolved]
  - Abdominal pain [Recovered/Resolved]
  - Amenorrhoea [Recovered/Resolved]
  - Implant site pain [Recovered/Resolved]
  - Heavy menstrual bleeding [Recovered/Resolved]

NARRATIVE: CASE EVENT DATE: 20201101
